FAERS Safety Report 8083982-9 (Version None)
Quarter: 2012Q1

REPORT INFORMATION
  Report Type: 
  Country: None (occurrence: None)
  Receive Date: 20120128
  Receipt Date: 20110117
  Transmission Date: 20120608
  Serious: No
  Sender: FDA-Public Use
  Company Number: US-ABBOTT-11P-163-0699200-00

PATIENT
  Sex: Female
  Weight: 56.296 kg

DRUGS (6)
  1. ACTONEL [Suspect]
     Indication: PRODUCT USED FOR UNKNOWN INDICATION
  2. TIMOLOL MALEATE [Concomitant]
     Indication: GLAUCOMA
     Route: 047
  3. TRAVATAN [Concomitant]
     Indication: GLAUCOMA
  4. RESTASIS [Concomitant]
     Indication: PRODUCT USED FOR UNKNOWN INDICATION
  5. OTHER UNLISTED MEDICATIONS [Concomitant]
     Indication: PRODUCT USED FOR UNKNOWN INDICATION
  6. HUMIRA [Suspect]
     Indication: RHEUMATOID ARTHRITIS
     Route: 058
     Dates: start: 20041108

REACTIONS (4)
  - GAIT DISTURBANCE [None]
  - VISUAL IMPAIRMENT [None]
  - DEPRESSION [None]
  - BONE PAIN [None]
